APPROVED DRUG PRODUCT: NARATRIPTAN
Active Ingredient: NARATRIPTAN HYDROCHLORIDE
Strength: EQ 1MG BASE
Dosage Form/Route: TABLET;ORAL
Application: A091373 | Product #001
Applicant: APOTEX CORP
Approved: Apr 22, 2011 | RLD: No | RS: No | Type: DISCN